FAERS Safety Report 9017619 (Version 1)
Quarter: 2013Q1

REPORT INFORMATION
  Report Type: Spontaneous
  Country: NZ (occurrence: NZ)
  Receive Date: 20130117
  Receipt Date: 20130117
  Transmission Date: 20140127
  Serious: Yes (Other)
  Sender: FDA-Public Use
  Company Number: PHHY2013NZ002717

PATIENT
  Age: 89 Year
  Sex: Female

DRUGS (5)
  1. DICLOFENAC [Suspect]
     Dosage: UNK UKN, UNK
     Route: 048
  2. WARFARIN [Suspect]
     Dosage: UNK UKN, UNK
     Route: 048
  3. ZINC [Concomitant]
     Dosage: UNK UKN, UNK
     Route: 048
  4. PARACETAMOL [Concomitant]
     Dosage: UNK UKN, UNK
  5. DILTIAZEM [Concomitant]
     Dosage: UNK UKN, UNK
     Route: 048

REACTIONS (4)
  - Gastrooesophageal reflux disease [Unknown]
  - Gastrointestinal haemorrhage [Unknown]
  - Rectal haemorrhage [Unknown]
  - Anaemia [Unknown]
